FAERS Safety Report 9295874 (Version 1)
Quarter: 2013Q2

REPORT INFORMATION
  Report Type: Spontaneous
  Country: US (occurrence: US)
  Receive Date: 20130517
  Receipt Date: 20130517
  Transmission Date: 20140414
  Serious: Yes (Hospitalization)
  Sender: FDA-Public Use
  Company Number: US-BAYER-2013-060588

PATIENT
  Age: 23 Year
  Sex: Female

DRUGS (2)
  1. YAZ [Suspect]
  2. CITALOPRAM [Concomitant]
     Dosage: 20 MG, UNK
     Dates: start: 20080716, end: 20090105

REACTIONS (1)
  - Pulmonary embolism [None]
